FAERS Safety Report 7535845-2 (Version None)
Quarter: 2011Q2

REPORT INFORMATION
  Report Type: 
  Country: None (occurrence: None)
  Receive Date: 20110609
  Receipt Date: 20110530
  Transmission Date: 20111010
  Serious: Yes (Hospitalization)
  Sender: FDA-Public Use
  Company Number: DK-BAYER-2011-046243

PATIENT
  Age: 34 Year
  Sex: Female

DRUGS (2)
  1. MIRENA [Suspect]
     Indication: CONTRACEPTION
     Dosage: UNK
     Dates: start: 20110101, end: 20110525
  2. COPPER T [Concomitant]

REACTIONS (12)
  - HAEMATOSALPINX [None]
  - PREGNANCY WITH CONTRACEPTIVE DEVICE [None]
  - DIARRHOEA [None]
  - NAUSEA [None]
  - VOMITING [None]
  - ACNE [None]
  - OVARIAN HAEMORRHAGE [None]
  - SYNCOPE [None]
  - FATIGUE [None]
  - CONSTIPATION [None]
  - ABDOMINAL PAIN [None]
  - POST PROCEDURAL HAEMORRHAGE [None]
